FAERS Safety Report 4852909-2 (Version None)
Quarter: 2005Q4

REPORT INFORMATION
  Report Type: 
  Country: None (occurrence: None)
  Receive Date: 20051212
  Receipt Date: 20051128
  Transmission Date: 20060501
  Serious: Yes (Hospitalization, Other)
  Sender: FDA-Public Use
  Company Number: 2005JP000332

PATIENT
  Age: 51 Year
  Sex: Female
  Weight: 35.5 kg

DRUGS (3)
  1. PROGRAF [Suspect]
     Indication: RENAL TRANSPLANT
     Dates: start: 20031201
  2. MYCOPHENOLATE MOFETIL (MYCOPHENOLATE MOFETIL) CAPSULE [Concomitant]
  3. METHYLPREDNISOLONE [Concomitant]

REACTIONS (8)
  - CANDIDIASIS [None]
  - KIDNEY TRANSPLANT REJECTION [None]
  - LIVER DISORDER [None]
  - NEPHRECTOMY [None]
  - POSTRENAL FAILURE [None]
  - PYONEPHROSIS [None]
  - RENAL TUBULAR NECROSIS [None]
  - STENOSIS OF VESICOURETHRAL ANASTOMOSIS [None]
